FAERS Safety Report 7647711-2 (Version None)
Quarter: 2011Q3

REPORT INFORMATION
  Report Type: 
  Country: None (occurrence: None)
  Receive Date: 20110801
  Receipt Date: 20110801
  Transmission Date: 20111222
  Serious: Yes (Hospitalization, Disabling)
  Sender: FDA-Public Use
  Company Number: None

PATIENT
  Age: 65 Year
  Sex: Female
  Weight: 66.678 kg

DRUGS (1)
  1. POTASSIUM CHLORIDE [Suspect]
     Indication: BLOOD POTASSIUM DECREASED
     Dosage: 10 MEQ
     Route: 048
     Dates: start: 20090724, end: 20090804

REACTIONS (2)
  - FOREIGN BODY [None]
  - DYSPHAGIA [None]
